FAERS Safety Report 18705661 (Version 1)
Quarter: 2021Q1

REPORT INFORMATION
  Report Type: Report from Study
  Country: CA (occurrence: CA)
  Receive Date: 20210106
  Receipt Date: 20210106
  Transmission Date: 20210419
  Serious: No
  Sender: FDA-Public Use
  Company Number: CA-KARYOPHARM-2020KPT001364

PATIENT
  Age: 59 Year
  Sex: Male

DRUGS (1)
  1. SELINEXOR [Suspect]
     Active Substance: SELINEXOR
     Indication: PLASMA CELL MYELOMA
     Dosage: UNK
     Route: 048
     Dates: start: 20191204

REACTIONS (3)
  - Vision blurred [Unknown]
  - Decreased appetite [Unknown]
  - Nausea [Unknown]
